FAERS Safety Report 11422312 (Version 1)
Quarter: 2015Q3

REPORT INFORMATION
  Report Type: Spontaneous
  Country: GB (occurrence: None)
  Receive Date: 20150825
  Receipt Date: 20150825
  Transmission Date: 20151125
  Serious: Yes (Other)
  Sender: FDA-Public Use
  Company Number: CL-651-2015

PATIENT
  Age: 40 Year
  Sex: Male

DRUGS (2)
  1. FLUCONAZOLE UNK [Suspect]
     Active Substance: FLUCONAZOLE
     Indication: MENINGITIS CRYPTOCOCCAL
     Dosage: 50 MG  OD ORAL
     Route: 048
  2. GSK1349572 (DOLUTEGRAVIR) [Suspect]
     Active Substance: DOLUTEGRAVIR
     Indication: HIV INFECTION
     Route: 048

REACTIONS (3)
  - Confusional state [None]
  - Hallucination, visual [None]
  - Drug interaction [None]
